FAERS Safety Report 12238762 (Version 1)
Quarter: 2016Q2

REPORT INFORMATION
  Report Type: Spontaneous
  Country: US (occurrence: US)
  Receive Date: 20160405
  Receipt Date: 20160405
  Transmission Date: 20160815
  Serious: Yes (Other)
  Sender: FDA-Public Use
  Company Number: US-TEVA-581669USA

PATIENT
  Age: 61 Year
  Sex: Female
  Weight: 72.19 kg

DRUGS (2)
  1. FLECTOR [Interacting]
     Active Substance: DICLOFENAC EPOLAMINE
     Indication: PAIN
     Dates: start: 201507, end: 20150722
  2. WARFARIN [Suspect]
     Active Substance: WARFARIN
     Indication: DEEP VEIN THROMBOSIS
     Dosage: 4 MILLIGRAM DAILY;
     Route: 065
     Dates: start: 201206

REACTIONS (4)
  - Drug interaction [Unknown]
  - Rectal haemorrhage [Not Recovered/Not Resolved]
  - Coagulopathy [Not Recovered/Not Resolved]
  - International normalised ratio increased [Unknown]

NARRATIVE: CASE EVENT DATE: 201507
